FAERS Safety Report 4985135-7 (Version None)
Quarter: 2006Q2

REPORT INFORMATION
  Report Type: 
  Country: None (occurrence: None)
  Receive Date: 20060427
  Receipt Date: 20060104
  Transmission Date: 20061013
  Serious: No
  Sender: FDA-Public Use
  Company Number: US-AMGEN-STX163566

PATIENT
  Sex: Male

DRUGS (2)
  1. ENBREL [Suspect]
     Indication: PSORIATIC ARTHROPATHY
     Route: 058
     Dates: start: 20050824, end: 20051219
  2. INH [Concomitant]
     Dates: start: 20051201

REACTIONS (2)
  - CONDITION AGGRAVATED [None]
  - PSORIATIC ARTHROPATHY [None]
